FAERS Safety Report 17105198 (Version 1)
Quarter: 2019Q4

REPORT INFORMATION
  Report Type: Spontaneous
  Country: US (occurrence: US)
  Receive Date: 20191203
  Receipt Date: 20191203
  Transmission Date: 20200122
  Serious: Yes (Other)
  Sender: FDA-Public Use
  Company Number: US-SA-2019SA330888

PATIENT
  Age: 43 Year
  Sex: Female
  Weight: 109.31 kg

DRUGS (51)
  1. FLUTICASONE. [Concomitant]
     Active Substance: FLUTICASONE
     Dosage: UNK, UNK
  2. ESCITALOPRAM [Concomitant]
     Active Substance: ESCITALOPRAM OXALATE
  3. VENLAFAXINE [Concomitant]
     Active Substance: VENLAFAXINE HYDROCHLORIDE
  4. TAXOTERE [Suspect]
     Active Substance: DOCETAXEL
     Indication: BREAST CANCER FEMALE
     Dosage: 165 MG, Q3W
     Route: 042
     Dates: start: 20130425, end: 20130425
  5. TAXOTERE [Suspect]
     Active Substance: DOCETAXEL
     Dosage: 165 MG, Q3W
     Route: 042
     Dates: start: 20130809, end: 20130809
  6. LORAZEPAM. [Concomitant]
     Active Substance: LORAZEPAM
     Dosage: TAKE 1 TAB BY MOUTH EVERY 8 HOURS AS NEEDED
     Route: 048
  7. METFORMIN [Concomitant]
     Active Substance: METFORMIN HYDROCHLORIDE
     Dosage: UNK, UNK
  8. AMOXICILLIN. [Concomitant]
     Active Substance: AMOXICILLIN
  9. ACETIC ACID OTIC SOLUTION [Concomitant]
     Active Substance: ACETIC ACID
  10. DEXAMETHASON [DEXAMETHASONE] [Concomitant]
     Active Substance: DEXAMETHASONE
     Dosage: 1 DF, BID
     Route: 048
  11. TRIMETHOPRIM SULFAMETHOXAZOLE [Concomitant]
     Active Substance: SULFAMETHOXAZOLE\TRIMETHOPRIM
  12. ATORVASTATIN [Concomitant]
     Active Substance: ATORVASTATIN
  13. FLUCONAZOLE. [Concomitant]
     Active Substance: FLUCONAZOLE
     Dosage: UNK, UNK
  14. NYSTATIN. [Concomitant]
     Active Substance: NYSTATIN
     Dosage: UNK, UNK
  15. ONDANSETRON [Concomitant]
     Active Substance: ONDANSETRON
     Dosage: TAKE 1 TAB BY MOUTH EVERY 8 HOURS AS NEEDED
  16. TRAMADOL. [Concomitant]
     Active Substance: TRAMADOL
  17. DULOXETINE. [Concomitant]
     Active Substance: DULOXETINE
  18. VALPROIC ACID. [Concomitant]
     Active Substance: VALPROIC ACID
  19. TRIAMCINOLONE [Concomitant]
     Active Substance: TRIAMCINOLONE
  20. LIDOCAINE AND PRILOCAINE [Concomitant]
     Active Substance: LIDOCAINE\PRILOCAINE
     Dosage: UNK, UNK
  21. AZITHROMYCIN ANHYDROUS. [Concomitant]
     Active Substance: AZITHROMYCIN ANHYDROUS
     Dosage: UNK, UNK
  22. CITALOPRAM [Concomitant]
     Active Substance: CITALOPRAM HYDROBROMIDE
     Dosage: 40 MG, QD
     Route: 048
  23. CORTISPORIN-TC [Concomitant]
     Active Substance: COLISTIN SULFATE\HYDROCORTISONE ACETATE\NEOMYCIN SULFATE\THONZONIUM BROMIDE
  24. NITROFURANTOIN. [Concomitant]
     Active Substance: NITROFURANTOIN
  25. PROMETHAZINE HYDROCHLORIDE AND CODEINE PHOSPHATE [Concomitant]
     Active Substance: CODEINE PHOSPHATE\PROMETHAZINE HYDROCHLORIDE
     Dosage: UNK, UNK
  26. CLONAZEPAM. [Concomitant]
     Active Substance: CLONAZEPAM
  27. FENOFIBRATE. [Concomitant]
     Active Substance: FENOFIBRATE
  28. CLINDAMYCIN. [Concomitant]
     Active Substance: CLINDAMYCIN
  29. SUDOGEST [Concomitant]
     Active Substance: PSEUDOEPHEDRINE HYDROCHLORIDE
  30. LOSARTAN. [Concomitant]
     Active Substance: LOSARTAN
  31. ARMODAFINIL. [Concomitant]
     Active Substance: ARMODAFINIL
  32. HERCEPTIN [Concomitant]
     Active Substance: TRASTUZUMAB
     Dosage: UNK
     Dates: start: 20130425, end: 20130425
  33. ACETAMINOPHEN;HYDROCODONE [Concomitant]
     Active Substance: ACETAMINOPHEN\HYDROCODONE
     Dosage: UNK, UNK
  34. NOVOLIN R [Concomitant]
     Active Substance: INSULIN HUMAN
     Dosage: UNK, UNK
  35. RANITIDINE. [Concomitant]
     Active Substance: RANITIDINE
  36. OMEPRAZOLE. [Concomitant]
     Active Substance: OMEPRAZOLE
  37. PARAPLATIN [Concomitant]
     Active Substance: CARBOPLATIN
     Indication: BREAST CANCER
     Dosage: UNK, UNK
  38. HYDROCHLOROTH [Concomitant]
     Active Substance: HYDROCHLOROTHIAZIDE
     Dosage: 25 MG
     Route: 048
  39. ESTRADIOL. [Concomitant]
     Active Substance: ESTRADIOL
  40. VITAMIN D2 [Concomitant]
     Active Substance: ERGOCALCIFEROL
  41. NUVIGIL [Concomitant]
     Active Substance: ARMODAFINIL
  42. HERCEPTIN [Concomitant]
     Active Substance: TRASTUZUMAB
     Dosage: UNK
     Dates: start: 20130809, end: 20130809
  43. AMLODIPINE [Concomitant]
     Active Substance: AMLODIPINE BESYLATE
     Dosage: TAKE 5 MG BY MOUTH DAILY
     Route: 048
  44. LISINOPRIL. [Concomitant]
     Active Substance: LISINOPRIL
     Dosage: UNK, UNK
  45. METRONIDAZOLE. [Concomitant]
     Active Substance: METRONIDAZOLE
  46. BUPROPION. [Concomitant]
     Active Substance: BUPROPION
  47. NAPROXEN. [Concomitant]
     Active Substance: NAPROXEN
  48. PRISTIQ EXTENDED-RELEASE [Concomitant]
     Active Substance: DESVENLAFAXINE SUCCINATE
  49. PROCHLORPERAZ [Concomitant]
     Active Substance: PROCHLORPERAZINE MALEATE
     Dosage: TAKE 1 TAB BY MOUTH EVERY 6 HOURS AS NEEDED (NAUSEA).
     Route: 048
  50. CEPHALEXINE [Concomitant]
     Active Substance: CEPHALEXIN
     Dosage: UNK
  51. MUCINEX [Concomitant]
     Active Substance: GUAIFENESIN

REACTIONS (2)
  - Alopecia [Recovering/Resolving]
  - Psychological trauma [Unknown]

NARRATIVE: CASE EVENT DATE: 20140209
